FAERS Safety Report 22631120 (Version 1)
Quarter: 2023Q2

REPORT INFORMATION
  Report Type: Spontaneous
  Country: US (occurrence: US)
  Receive Date: 20230622
  Receipt Date: 20230622
  Transmission Date: 20230721
  Serious: No
  Sender: FDA-Public Use
  Company Number: US-BRISTOL-MYERS SQUIBB COMPANY-2023-086070

PATIENT

DRUGS (1)
  1. ZEPOSIA [Interacting]
     Active Substance: OZANIMOD HYDROCHLORIDE
     Indication: Product used for unknown indication

REACTIONS (1)
  - Drug interaction [Unknown]
